FAERS Safety Report 20209434 (Version 2)
Quarter: 2021Q4

REPORT INFORMATION
  Report Type: Spontaneous
  Country: US (occurrence: US)
  Receive Date: 20211221
  Receipt Date: 20211222
  Transmission Date: 20220303
  Serious: No
  Sender: FDA-Public Use
  Company Number: US-NOVARTISTESTPH-NVSC2021US291266

PATIENT
  Sex: Female

DRUGS (2)
  1. VOTRIENT [Suspect]
     Active Substance: PAZOPANIB HYDROCHLORIDE
     Indication: Malignant connective tissue neoplasm
     Dosage: 800 MG, QD
     Route: 048
     Dates: start: 20211129
  2. VOTRIENT [Suspect]
     Active Substance: PAZOPANIB HYDROCHLORIDE
     Indication: Soft tissue sarcoma
     Dosage: 200 MG, QD (DAILY)
     Route: 048
     Dates: start: 20211126

REACTIONS (5)
  - Lethargy [Unknown]
  - Diarrhoea [Not Recovered/Not Resolved]
  - Abdominal pain [Not Recovered/Not Resolved]
  - Nausea [Not Recovered/Not Resolved]
  - Hair colour changes [Not Recovered/Not Resolved]
